FAERS Safety Report 5620106-9 (Version None)
Quarter: 2008Q1

REPORT INFORMATION
  Report Type: 
  Country: None (occurrence: None)
  Receive Date: 20080208
  Receipt Date: 20080204
  Transmission Date: 20080703
  Serious: Yes (Hospitalization)
  Sender: FDA-Public Use
  Company Number: FR-WYE-G00992608

PATIENT
  Age: 66 Year
  Sex: Male

DRUGS (11)
  1. TAZOCILLINE [Suspect]
     Dosage: 12 G TOTAL DAILY
     Route: 042
     Dates: start: 20070930, end: 20071012
  2. TAZOCILLINE [Suspect]
     Dosage: 16 G TOTAL DAILY
     Route: 048
     Dates: start: 20071013, end: 20071121
  3. CIFLOX [Suspect]
     Dosage: 400 MG TOTAL DAILY
     Dates: start: 20070930, end: 20071017
  4. TRIATEC [Concomitant]
     Route: 048
  5. TRIFLUCAN [Concomitant]
     Dosage: UNKNOWN
     Dates: start: 20071107, end: 20071121
  6. LANTUS [Concomitant]
     Dosage: 10 UNIT EVERY 1 DAY
  7. ASPEGIC 1000 [Concomitant]
     Route: 048
  8. MOPRAL [Concomitant]
     Route: 048
  9. TARDYFERON [Concomitant]
     Dosage: UNKNOWN
     Route: 048
  10. BACTRIM [Suspect]
     Dosage: 3 TABLETS TOTAL DAILY
     Route: 048
     Dates: start: 20071012, end: 20071121
  11. GLUCOPHAGE [Concomitant]
     Dosage: 3 G TOTAL DAILY
     Route: 048

REACTIONS (1)
  - BONE MARROW FAILURE [None]
